FAERS Safety Report 6657427-7 (Version None)
Quarter: 2010Q1

REPORT INFORMATION
  Report Type: 
  Country: None (occurrence: None)
  Receive Date: 20100330
  Receipt Date: 20100318
  Transmission Date: 20100710
  Serious: Yes (Other)
  Sender: FDA-Public Use
  Company Number: FR-PFIZER INC-2010034931

PATIENT
  Age: 88 Year
  Sex: Male

DRUGS (1)
  1. SUTENT [Suspect]
     Indication: ADENOCARCINOMA
     Dosage: UNK
     Dates: start: 20100101

REACTIONS (3)
  - CONFUSIONAL STATE [None]
  - DYSARTHRIA [None]
  - VOMITING [None]
